FAERS Safety Report 8139559-X (Version None)
Quarter: 2012Q1

REPORT INFORMATION
  Report Type: 
  Country: None (occurrence: None)
  Receive Date: 20120215
  Receipt Date: 20111212
  Transmission Date: 20120608
  Serious: Yes (Other)
  Sender: FDA-Public Use
  Company Number: CHPA2011US017871

PATIENT
  Sex: Female

DRUGS (2)
  1. EXCEDRIN (MIGRAINE) [Suspect]
     Dosage: UNK DF, UNK
     Route: 048
  2. SYNTHROID [Concomitant]
     Indication: THYROID DISORDER
     Dosage: 0.75 MG, UNK

REACTIONS (3)
  - TYPE 2 DIABETES MELLITUS [None]
  - SYSTEMIC LUPUS ERYTHEMATOSUS [None]
  - ABDOMINAL DISCOMFORT [None]
